FAERS Safety Report 8608941-6 (Version None)
Quarter: 2012Q3

REPORT INFORMATION
  Report Type: 
  Country: None (occurrence: None)
  Receive Date: 20120821
  Receipt Date: 20120813
  Transmission Date: 20120928
  Serious: Yes (Other)
  Sender: FDA-Public Use
  Company Number: CA-JNJFOC-20120805650

PATIENT
  Sex: Female
  Weight: 61 kg

DRUGS (6)
  1. REMICADE [Suspect]
     Indication: CROHN'S DISEASE
     Route: 042
     Dates: start: 20110610, end: 20120629
  2. PREDNISONE TAB [Concomitant]
     Route: 048
  3. BENADRYL [Concomitant]
     Route: 042
  4. PLAQUENIL [Concomitant]
     Route: 048
     Dates: start: 20120528
  5. HYDROCORTISONE [Concomitant]
     Indication: PREMEDICATION
     Route: 042
  6. METHOTREXATE [Concomitant]
     Route: 058
     Dates: start: 20120802

REACTIONS (2)
  - ARTHRALGIA [None]
  - LUPUS-LIKE SYNDROME [None]
